FAERS Safety Report 16515647 (Version 1)
Quarter: 2019Q3

REPORT INFORMATION
  Report Type: Spontaneous
  Country: US (occurrence: US)
  Receive Date: 20190702
  Receipt Date: 20190702
  Transmission Date: 20191004
  Serious: Yes (Hospitalization, Other)
  Sender: FDA-Public Use
  Company Number: US-PFIZER INC-2019274159

PATIENT
  Age: 49 Year
  Sex: Male

DRUGS (3)
  1. TRENBOLONE ACETATE [Suspect]
     Active Substance: TRENBOLONE ACETATE
     Indication: ANDROGEN THERAPY
     Dosage: UNK
  2. TESTOSTERONE CIPIONATE [Suspect]
     Active Substance: TESTOSTERONE
     Indication: ANDROGEN THERAPY
     Dosage: UNK, MONTHLY
  3. OXANDROLONE. [Suspect]
     Active Substance: OXANDROLONE
     Indication: ANDROGEN THERAPY
     Dosage: UNK

REACTIONS (4)
  - Polycythaemia [Recovering/Resolving]
  - Ischaemic stroke [Recovered/Resolved]
  - Gerstmann^s syndrome [Recovering/Resolving]
  - Hypercoagulation [Unknown]
